FAERS Safety Report 22598803 (Version 1)
Quarter: 2023Q2

REPORT INFORMATION
  Report Type: Spontaneous
  Country: BR (occurrence: BR)
  Receive Date: 20230614
  Receipt Date: 20230614
  Transmission Date: 20230722
  Serious: Yes (Other)
  Sender: FDA-Public Use
  Company Number: BR-TAKEDA-2023TUS057040

PATIENT
  Age: 2 Year

DRUGS (1)
  1. HEMO-8R [Suspect]
     Active Substance: ANTIHEMOPHILIC FACTOR, HUMAN RECOMBINANT
     Indication: Product used for unknown indication
     Dosage: UNK, 1/WEEK
     Route: 042

REACTIONS (3)
  - Vein rupture [Unknown]
  - Restlessness [Unknown]
  - Inappropriate schedule of product administration [Unknown]
